FAERS Safety Report 6926289-2 (Version None)
Quarter: 2010Q3

REPORT INFORMATION
  Report Type: 
  Country: None (occurrence: None)
  Receive Date: 20100816
  Receipt Date: 20100621
  Transmission Date: 20110219
  Serious: No
  Sender: FDA-Public Use
  Company Number: US-BAYER-201019428NA

PATIENT
  Age: 27 Year
  Sex: Female

DRUGS (1)
  1. MIRENA [Suspect]
     Indication: CONTRACEPTION
     Dosage: 20 FREQUENCY CONTINUOUS
     Route: 015
     Dates: start: 20090601

REACTIONS (3)
  - DEVICE EXPULSION [None]
  - MENORRHAGIA [None]
  - PREGNANCY WITH CONTRACEPTIVE DEVICE [None]
